FAERS Safety Report 8175106-4 (Version None)
Quarter: 2012Q1

REPORT INFORMATION
  Report Type: 
  Country: None (occurrence: None)
  Receive Date: 20120229
  Receipt Date: 20120223
  Transmission Date: 20120608
  Serious: Yes (Other)
  Sender: FDA-Public Use
  Company Number: PHHY2012IT015512

PATIENT
  Sex: Male

DRUGS (3)
  1. ZOMETA [Suspect]
     Indication: METASTASES TO BONE
     Dosage: 4 MG, QMO
     Route: 042
     Dates: start: 20110301, end: 20111212
  2. TAXOTERE [Concomitant]
     Dosage: 80 MG/4 ML
     Route: 042
  3. PREDNISONE TAB [Concomitant]
     Dosage: UNK UKN, UNK
     Route: 048

REACTIONS (2)
  - OSTEONECROSIS OF JAW [None]
  - BONE DISORDER [None]
